FAERS Safety Report 20355887 (Version 1)
Quarter: 2022Q1

REPORT INFORMATION
  Report Type: Spontaneous
  Country: CA (occurrence: CA)
  Receive Date: 20220120
  Receipt Date: 20220120
  Transmission Date: 20220423
  Serious: Yes (Other)
  Sender: FDA-Public Use
  Company Number: CA-TEVA-2022-CA-1998829

PATIENT
  Age: 78 Year
  Sex: Male

DRUGS (4)
  1. CYCLOSPORINE [Suspect]
     Active Substance: CYCLOSPORINE
     Indication: Product used for unknown indication
     Route: 065
  2. AMLODIPINE [Concomitant]
     Active Substance: AMLODIPINE BESYLATE
     Indication: Product used for unknown indication
     Route: 065
  3. MAGNESIUM [Concomitant]
     Active Substance: MAGNESIUM
     Indication: Product used for unknown indication
     Route: 065
  4. ALUMINIUM CHLOROHYDRATE/BELLADONNA/BISMUTH SUBNITRATE/CALCIUM CARBONAT [Concomitant]
     Indication: Product used for unknown indication
     Route: 065

REACTIONS (2)
  - Aplasia pure red cell [Unknown]
  - Pain [Unknown]
